FAERS Safety Report 21326051 (Version 1)
Quarter: 2022Q3

REPORT INFORMATION
  Report Type: Spontaneous
  Country: US (occurrence: None)
  Receive Date: 20220913
  Receipt Date: 20220913
  Transmission Date: 20221026
  Serious: No
  Sender: FDA-Public Use
  Company Number: 2022A290513

PATIENT
  Sex: Female

DRUGS (1)
  1. SYMBICORT [Suspect]
     Active Substance: BUDESONIDE\FORMOTEROL FUMARATE DIHYDRATE
     Dosage: 2 PUFFS ONCE A DAY, DAILY
     Route: 055

REACTIONS (6)
  - Dyspnoea [Unknown]
  - Bronchitis [Unknown]
  - Therapeutic product effect decreased [Unknown]
  - Intentional product misuse [Unknown]
  - Inability to afford medication [Unknown]
  - Off label use [Unknown]
